FAERS Safety Report 22536690 (Version 1)
Quarter: 2023Q2

REPORT INFORMATION
  Report Type: Spontaneous
  Country: BR (occurrence: BR)
  Receive Date: 20230608
  Receipt Date: 20230608
  Transmission Date: 20230721
  Serious: Yes (Other)
  Sender: FDA-Public Use
  Company Number: BR-SUN PHARMACEUTICAL INDUSTRIES LTD-2023R1-392870

PATIENT
  Sex: Male

DRUGS (8)
  1. LEVOTHYROXINE [Suspect]
     Active Substance: LEVOTHYROXINE
     Indication: Hypothyroidism
     Dosage: UNK
     Route: 065
  2. AMIODARONE [Suspect]
     Active Substance: AMIODARONE
     Indication: Palpitations
     Dosage: UNK
     Route: 064
  3. DIGOXIN [Suspect]
     Active Substance: DIGOXIN
     Indication: Pregnancy
     Dosage: UNK
     Route: 064
  4. PROPRANOLOL [Suspect]
     Active Substance: PROPRANOLOL HYDROCHLORIDE
     Indication: Pregnancy
     Dosage: UNK
     Route: 064
  5. FUROSEMIDE [Suspect]
     Active Substance: FUROSEMIDE
     Indication: Pregnancy
     Dosage: UNK
     Route: 064
  6. FOLIC ACID [Suspect]
     Active Substance: FOLIC ACID
     Indication: Pregnancy
     Dosage: UNK
     Route: 064
  7. FERROUS SULFATE [Suspect]
     Active Substance: FERROUS SULFATE
     Indication: Pregnancy
     Dosage: UNK
     Route: 064
  8. BETAMETHASONE [Suspect]
     Active Substance: BETAMETHASONE
     Indication: Product used for unknown indication
     Dosage: UNK
     Route: 064

REACTIONS (4)
  - Foetal exposure during pregnancy [Unknown]
  - Premature baby [Unknown]
  - Low birth weight baby [Unknown]
  - Heart disease congenital [Unknown]
